FAERS Safety Report 5648942-3 (Version None)
Quarter: 2008Q1

REPORT INFORMATION
  Report Type: 
  Country: None (occurrence: None)
  Receive Date: 20080303
  Receipt Date: 20080303
  Transmission Date: 20080703
  Serious: Yes (Other)
  Sender: FDA-Public Use
  Company Number: None

PATIENT
  Age: 28 Year
  Sex: Male
  Weight: 86.1834 kg

DRUGS (1)
  1. LEVAQUIN [Suspect]
     Indication: BACTERIAL INFECTION
     Dosage: 500MG   1/PER DAY  PO
     Route: 048
     Dates: start: 20070820, end: 20070823

REACTIONS (2)
  - ACTIVITIES OF DAILY LIVING IMPAIRED [None]
  - TENDONITIS [None]
